FAERS Safety Report 6409001-5 (Version None)
Quarter: 2009Q4

REPORT INFORMATION
  Report Type: 
  Country: None (occurrence: None)
  Receive Date: 20091009
  Receipt Date: 20090928
  Transmission Date: 20100525
  Serious: Yes (Other)
  Sender: FDA-Public Use
  Company Number: CHPA2009US19778

PATIENT
  Age: 79 Year
  Sex: Female
  Weight: 57.1 kg

DRUGS (3)
  1. EXCEDRIN (MIGRAINE) [Suspect]
     Indication: ARTHRALGIA
     Dosage: PRN, ORAL : 2 DF, Q4H, ORAL
     Route: 048
  2. EXCEDRIN (MIGRAINE) [Suspect]
     Indication: ARTHRITIS
     Dosage: PRN, ORAL : 2 DF, Q4H, ORAL
     Route: 048
  3. EXCEDRIN ES BACK + BODY [Concomitant]

REACTIONS (1)
  - BREAST CANCER [None]
